FAERS Safety Report 23414384 (Version 3)
Quarter: 2024Q2

REPORT INFORMATION
  Report Type: Spontaneous
  Country: CA (occurrence: CA)
  Receive Date: 20240118
  Receipt Date: 20240509
  Transmission Date: 20240716
  Serious: Yes (Other)
  Sender: FDA-Public Use
  Company Number: CA-CELLTRION INC.-2024CA001019

PATIENT

DRUGS (5)
  1. INFLECTRA [Suspect]
     Active Substance: INFLIXIMAB-DYYB
     Indication: Colitis ulcerative
     Dosage: 1 DF, DOSAGE INFO:  UNKNOWN. HOSPITAL START
     Route: 042
     Dates: start: 20231126, end: 20231126
  2. INFLECTRA [Suspect]
     Active Substance: INFLIXIMAB-DYYB
     Dosage: 400 MG, WEEK 2, 6, THEN EVERY 8 WEEKS
     Route: 042
     Dates: start: 20231211
  3. INFLECTRA [Suspect]
     Active Substance: INFLIXIMAB-DYYB
     Dosage: 400 MG, WEEK 2, 6, THEN EVERY 8 WEEKS
     Route: 042
     Dates: start: 20231211
  4. INFLECTRA [Suspect]
     Active Substance: INFLIXIMAB-DYYB
     Dosage: 400 MG AFTER 4 WEEKS (PRESCRIBED WEEK 2, 6 WEEKS THEN EVERY 8 WEEKS)
     Route: 042
     Dates: start: 20240110
  5. CANDESARTAN [Concomitant]
     Active Substance: CANDESARTAN
     Dosage: 15 MG,FREQUENCY: UNKNOWN
     Route: 065

REACTIONS (2)
  - Blood pressure increased [Unknown]
  - Off label use [Unknown]

NARRATIVE: CASE EVENT DATE: 20240110
